FAERS Safety Report 18317551 (Version 2)
Quarter: 2022Q2

REPORT INFORMATION
  Report Type: Spontaneous
  Country: US (occurrence: US)
  Receive Date: 20200928
  Receipt Date: 20220511
  Transmission Date: 20220721
  Serious: Yes (Other)
  Sender: FDA-Public Use
  Company Number: US-SAARTEMIS-SAC202009230604

PATIENT
  Age: 45 Year
  Sex: Male

DRUGS (2)
  1. ZANTAC [Suspect]
     Active Substance: RANITIDINE HYDROCHLORIDE
     Indication: Gastrooesophageal reflux disease
     Dosage: 75 MG, QD
     Dates: start: 199801
  2. ZANTAC [Suspect]
     Active Substance: RANITIDINE HYDROCHLORIDE
     Indication: Dyspepsia
     Dosage: 150 MG, QD
     Dates: end: 201012

REACTIONS (3)
  - Colorectal cancer stage III [Unknown]
  - Gastrointestinal carcinoma [Unknown]
  - Small intestine carcinoma stage III [Not Recovered/Not Resolved]

NARRATIVE: CASE EVENT DATE: 20090101
